FAERS Safety Report 6256284-0 (Version None)
Quarter: 2009Q3

REPORT INFORMATION
  Report Type: 
  Country: None (occurrence: None)
  Receive Date: 20090706
  Receipt Date: 20090629
  Transmission Date: 20100115
  Serious: Yes (Other)
  Sender: FDA-Public Use
  Company Number: DE-BAYER-200915304GPV

PATIENT
  Age: 35 Year
  Sex: Female
  Weight: 85 kg

DRUGS (1)
  1. MIRENA [Suspect]
     Indication: CONTRACEPTION
     Route: 015
     Dates: start: 20061218

REACTIONS (5)
  - AMNIOTIC CAVITY INFECTION [None]
  - MECONIUM IN AMNIOTIC FLUID [None]
  - PREGNANCY WITH CONTRACEPTIVE DEVICE [None]
  - PREMATURE RUPTURE OF MEMBRANES [None]
  - UTERINE CONTRACTIONS DURING PREGNANCY [None]
